FAERS Safety Report 6787664-2 (Version None)
Quarter: 2010Q2

REPORT INFORMATION
  Report Type: 
  Country: None (occurrence: None)
  Receive Date: 20100621
  Receipt Date: 20100604
  Transmission Date: 20101027
  Serious: Yes (Hospitalization)
  Sender: FDA-Public Use
  Company Number: 2010060030

PATIENT
  Age: 72 Year
  Sex: Female

DRUGS (9)
  1. TORSEMIDE [Suspect]
     Indication: ATRIAL FIBRILLATION
     Dosage: 15 MG (7.5 MG, 2 IN 1 D), ORAL
     Route: 048
     Dates: start: 20091201, end: 20100415
  2. SEROQUEL [Suspect]
     Indication: MENTAL DISORDER DUE TO A GENERAL MEDICAL CONDITION
     Dosage: 75 MG (25 MG, 3 IN 1 D), ORAL
     Route: 048
     Dates: start: 20050101, end: 20100414
  3. LYRICA [Concomitant]
  4. ALLOPURINOL [Concomitant]
  5. LEVOTHYROXINE SODIUM [Concomitant]
  6. NACOM (CARBIDOPA, LEVODOPA) [Concomitant]
  7. LEFAX (SILICON DIOXIDE, COLLOIDAL, DIMETICONE) [Concomitant]
  8. INSULIN ACTRAPHANE (INSULIN HUMAN, ISOPHANE) [Concomitant]
  9. NEUPRO [Concomitant]

REACTIONS (1)
  - HYPONATRAEMIA [None]
